FAERS Safety Report 7718758-2 (Version None)
Quarter: 2011Q3

REPORT INFORMATION
  Report Type: 
  Country: None (occurrence: None)
  Receive Date: 20110830
  Receipt Date: 20110825
  Transmission Date: 20111222
  Serious: Yes (Other)
  Sender: FDA-Public Use
  Company Number: BR-PFIZER INC-2011197476

PATIENT
  Age: 68 Year
  Sex: Female
  Weight: 68 kg

DRUGS (5)
  1. LIPITOR [Suspect]
     Indication: BLOOD CHOLESTEROL INCREASED
     Dosage: 10 MG (ONE TABLET), 1X/DAY
     Route: 048
     Dates: start: 20110501, end: 20110101
  2. AAS INFANTIL [Concomitant]
     Indication: ANTICOAGULANT THERAPY
     Dosage: UNK
  3. DIOVAN [Concomitant]
     Indication: BLOOD PRESSURE INCREASED
     Dosage: 160 MG, UNK
     Dates: start: 20070101, end: 20110810
  4. INDAPEN SR [Concomitant]
     Indication: BLOOD PRESSURE INCREASED
     Dosage: UNK
     Dates: end: 20110810
  5. DORFLEX [Concomitant]
     Indication: ARTHRALGIA
     Dosage: UNK

REACTIONS (8)
  - COUGH [None]
  - BRONCHITIS [None]
  - FATIGUE [None]
  - WHEEZING [None]
  - WALKING DISABILITY [None]
  - NASOPHARYNGITIS [None]
  - DYSPNOEA [None]
  - PAIN IN EXTREMITY [None]
